FAERS Safety Report 8159615-X (Version None)
Quarter: 2012Q1

REPORT INFORMATION
  Report Type: 
  Country: None (occurrence: None)
  Receive Date: 20120223
  Receipt Date: 20120217
  Transmission Date: 20120608
  Serious: Yes (Life-Threatening)
  Sender: FDA-Public Use
  Company Number: IT-ROCHE-1041449

PATIENT
  Age: 62 Year
  Sex: Male

DRUGS (2)
  1. OXALIPLATIN [Concomitant]
     Indication: COLORECTAL CANCER STAGE III
     Route: 042
     Dates: start: 20120127
  2. XELODA [Suspect]
     Indication: COLORECTAL CANCER STAGE III
     Route: 048
     Dates: start: 20120128

REACTIONS (6)
  - MUSCULAR WEAKNESS [None]
  - NEUTROPENIA [None]
  - DIARRHOEA [None]
  - MUCOSAL INFLAMMATION [None]
  - THROMBOCYTOPENIA [None]
  - DEHYDRATION [None]
